FAERS Safety Report 5027770-6 (Version None)
Quarter: 2006Q2

REPORT INFORMATION
  Report Type: 
  Country: None (occurrence: None)
  Receive Date: 20060616
  Receipt Date: 20060606
  Transmission Date: 20061013
  Serious: Yes (Other)
  Sender: FDA-Public Use
  Company Number: US-JNJFOC-20060601826

PATIENT
  Age: 34 Year
  Sex: Female
  Weight: 61.8 kg

DRUGS (9)
  1. IBUPROFEN [Suspect]
  2. IBUPROFEN [Suspect]
     Indication: PAIN
     Dosage: AS NEEDED BASIS
  3. TRAMADOL HYDROCHLORIDE [Concomitant]
     Indication: PAIN
  4. ACETAMINOPHEN [Concomitant]
     Indication: PAIN
  5. BUTALBITAL, ACETAMINOPHEN, CAFFEINE [Concomitant]
     Indication: PAIN
  6. SUMATRIPTAN SUCCINATE [Concomitant]
     Indication: PAIN
     Dosage: AVERAGE OF 10 TABLETS PER MONTH
  7. OXYCODONE HCL [Concomitant]
     Indication: PAIN
  8. PERCOCET [Concomitant]
  9. PERCOCET [Concomitant]
     Indication: PAIN

REACTIONS (1)
  - NEPHROTIC SYNDROME [None]
